FAERS Safety Report 12106418 (Version 2)
Quarter: 2016Q1

REPORT INFORMATION
  Report Type: Spontaneous
  Country: ZA (occurrence: ZA)
  Receive Date: 20160223
  Receipt Date: 20160323
  Transmission Date: 20160526
  Serious: Yes (Hospitalization, Other)
  Sender: FDA-Public Use
  Company Number: ZA-PFIZER INC-2016109149

PATIENT
  Age: 55 Year
  Sex: Female

DRUGS (2)
  1. SERTRA [Suspect]
     Active Substance: SERTRALINE HYDROCHLORIDE
     Dosage: UNK
     Dates: end: 201602
  2. SERTRA [Suspect]
     Active Substance: SERTRALINE HYDROCHLORIDE
     Indication: ANXIETY
     Dosage: 25 MG, UNK

REACTIONS (11)
  - Sjogren^s syndrome [Recovered/Resolved]
  - Vertigo [Recovered/Resolved]
  - Anxiety [Recovered/Resolved]
  - Oral discomfort [Recovered/Resolved]
  - Tinnitus [Recovered/Resolved]
  - Dry eye [Recovered/Resolved]
  - Nasal dryness [Recovered/Resolved]
  - Vulvovaginal dryness [Recovered/Resolved]
  - Condition aggravated [Recovered/Resolved]
  - Dry mouth [Recovered/Resolved]
  - Glossodynia [Recovered/Resolved]

NARRATIVE: CASE EVENT DATE: 201510
